FAERS Safety Report 5871046-1 (Version None)
Quarter: 2008Q3

REPORT INFORMATION
  Report Type: 
  Country: None (occurrence: None)
  Receive Date: 20080829
  Receipt Date: 20080507
  Transmission Date: 20090109
  Serious: No
  Sender: FDA-Public Use
  Company Number: 002#2#2008-00252

PATIENT
  Age: 71 Year
  Sex: Female
  Weight: 48.9885 kg

DRUGS (7)
  1. NEUPRO [Suspect]
     Indication: PARKINSON'S DISEASE
     Dosage: 2MG/ 24H, 1 IN 1D, TRANSDERMAL; 4MG/ 23H, 1 IN 1 D, TRANSDERMAL; 6 MG/2 HR, 1 IN 1 D, TRANSDERMAL
     Route: 062
     Dates: start: 20071001, end: 20071001
  2. NEUPRO [Suspect]
     Indication: PARKINSON'S DISEASE
     Dosage: 2MG/ 24H, 1 IN 1D, TRANSDERMAL; 4MG/ 23H, 1 IN 1 D, TRANSDERMAL; 6 MG/2 HR, 1 IN 1 D, TRANSDERMAL
     Route: 062
     Dates: start: 20071001, end: 20071201
  3. NEUPRO [Suspect]
     Indication: PARKINSON'S DISEASE
     Dosage: 2MG/ 24H, 1 IN 1D, TRANSDERMAL; 4MG/ 23H, 1 IN 1 D, TRANSDERMAL; 6 MG/2 HR, 1 IN 1 D, TRANSDERMAL
     Route: 062
     Dates: start: 20071201, end: 20071201
  4. NEUPRO [Suspect]
     Indication: PARKINSON'S DISEASE
     Dosage: 2MG/ 24H, 1 IN 1D, TRANSDERMAL; 4MG/ 23H, 1 IN 1 D, TRANSDERMAL; 6 MG/2 HR, 1 IN 1 D, TRANSDERMAL
     Route: 062
     Dates: start: 20071201
  5. NEUPRO [Suspect]
     Indication: PARKINSON'S DISEASE
     Dosage: 2MG/ 24H, 1 IN 1D, TRANSDERMAL; 4MG/ 23H, 1 IN 1 D, TRANSDERMAL; 6 MG/2 HR, 1 IN 1 D, TRANSDERMAL
     Route: 062
     Dates: start: 20080401
  6. NEUPRO [Suspect]
  7. SINEMET [Concomitant]

REACTIONS (8)
  - APPLICATION SITE PAIN [None]
  - DRUG EFFECT DECREASED [None]
  - GAIT DISTURBANCE [None]
  - MIDDLE INSOMNIA [None]
  - PHARMACEUTICAL PRODUCT COMPLAINT [None]
  - PSYCHOMOTOR HYPERACTIVITY [None]
  - SOMNOLENCE [None]
  - TREMOR [None]
